FAERS Safety Report 12389783 (Version 3)
Quarter: 2016Q3

REPORT INFORMATION
  Report Type: Spontaneous
  Country: US (occurrence: US)
  Receive Date: 20160520
  Receipt Date: 20160810
  Transmission Date: 20161109
  Serious: Yes (Other)
  Sender: FDA-Public Use
  Company Number: US-009507513-1605USA009005

PATIENT
  Sex: Female

DRUGS (1)
  1. IMPLANON [Suspect]
     Active Substance: ETONOGESTREL
     Indication: PRODUCT USED FOR UNKNOWN INDICATION
     Dosage: 1 DF OF 68 MG  LASTING FOR UP TO 3 YEARS
     Route: 059
     Dates: start: 20130820, end: 2015

REACTIONS (8)
  - Difficulty removing drug implant [Recovered/Resolved]
  - Migraine [Unknown]
  - Complication associated with device [Recovered/Resolved]
  - Vaginal haemorrhage [Unknown]
  - Vaginal discharge [Unknown]
  - Hypoaesthesia [Unknown]
  - Migration of implanted drug [Recovered/Resolved]
  - Pain in extremity [Unknown]

NARRATIVE: CASE EVENT DATE: 201401
